FAERS Safety Report 11884161 (Version 1)
Quarter: 2016Q1

REPORT INFORMATION
  Report Type: Spontaneous
  Country: GB (occurrence: GB)
  Receive Date: 20160103
  Receipt Date: 20160103
  Transmission Date: 20160526
  Serious: Yes (Other)
  Sender: FDA-Public Use
  Company Number: GB-GLAXOSMITHKLINE-GB2015181834

PATIENT
  Age: 72 Year
  Sex: Male
  Weight: 82 kg

DRUGS (8)
  1. ATORVASTATIN [Concomitant]
     Active Substance: ATORVASTATIN
  2. ATENOLOL. [Concomitant]
     Active Substance: ATENOLOL
  3. NASEPTIN [Concomitant]
     Active Substance: CHLORHEXIDINE HYDROCHLORIDE\NEOMYCIN SULFATE
  4. FUCIDIN [Concomitant]
     Active Substance: FUSIDIC ACID
     Indication: CAUTERY TO NOSE
  5. GLYCERYL TRINITRATE [Concomitant]
     Active Substance: NITROGLYCERIN
  6. OLMESARTAN [Concomitant]
     Active Substance: OLMESARTAN
  7. ASPIRIN. [Concomitant]
     Active Substance: ASPIRIN
  8. BACTROBAN [Suspect]
     Active Substance: MUPIROCIN\MUPIROCIN CALCIUM
     Indication: CAUTERY TO NOSE
     Dosage: APPLY 2-3 TIMES A DAY UP NOSE
     Route: 045
     Dates: start: 20151012, end: 20151019

REACTIONS (4)
  - Apnoea [Recovered/Resolved]
  - Loss of consciousness [Recovered/Resolved]
  - Drug prescribing error [Unknown]
  - Syncope [Recovered/Resolved]

NARRATIVE: CASE EVENT DATE: 20151012
